FAERS Safety Report 4502274-5 (Version None)
Quarter: 2004Q4

REPORT INFORMATION
  Report Type: 
  Country: None (occurrence: None)
  Receive Date: 20041109
  Receipt Date: 20041022
  Transmission Date: 20050328
  Serious: Yes (Death)
  Sender: FDA-Public Use
  Company Number: S04-UKI-06632-01

PATIENT
  Sex: Female
  Weight: 51.5 kg

DRUGS (8)
  1. CITALOPRAM HYDROBROMIDE [Suspect]
     Indication: ANXIETY
  2. CITALOPRAM HYDROBROMIDE [Suspect]
     Indication: DEPRESSION
  3. CITALOPRAM HYDROBROMIDE [Suspect]
     Indication: ANXIETY
     Dosage: 40 MG QD PO
     Route: 048
     Dates: start: 20040514
  4. CITALOPRAM HYDROBROMIDE [Suspect]
     Indication: DEPRESSION
     Dosage: 40 MG QD PO
     Route: 048
     Dates: start: 20040514
  5. CITALOPRAM HYDROBROMIDE [Suspect]
     Indication: ANXIETY
     Dosage: 20 MG QD PO
     Route: 048
     Dates: start: 20040420, end: 20040514
  6. CITALOPRAM HYDROBROMIDE [Suspect]
     Indication: DEPRESSION
     Dosage: 20 MG QD PO
     Route: 048
     Dates: start: 20040420, end: 20040514
  7. ETHANOL [Suspect]
  8. ZOPICLONE [Concomitant]

REACTIONS (3)
  - BLOOD ETHANOL INCREASED [None]
  - DRUG TOXICITY [None]
  - OVERDOSE [None]
